FAERS Safety Report 8244617-5 (Version None)
Quarter: 2012Q1

REPORT INFORMATION
  Report Type: 
  Country: None (occurrence: None)
  Receive Date: 20120329
  Receipt Date: 20120326
  Transmission Date: 20120608
  Serious: Yes (Other)
  Sender: FDA-Public Use
  Company Number: US-PFIZER INC-2012077602

PATIENT
  Sex: Male
  Weight: 88.435 kg

DRUGS (4)
  1. LYRICA [Suspect]
     Indication: NEUROPATHY PERIPHERAL
     Dosage: 50 MG, 3X/DAY
     Route: 048
     Dates: start: 20080101
  2. LIPITOR [Suspect]
     Dosage: UNK
  3. PRISTIQ [Concomitant]
     Dosage: UNK
  4. VIAGRA [Concomitant]
     Dosage: UNK

REACTIONS (2)
  - CEREBROVASCULAR ACCIDENT [None]
  - FOOD POISONING [None]
